FAERS Safety Report 10218845 (Version 1)
Quarter: 2014Q2

REPORT INFORMATION
  Report Type: Spontaneous
  Country: US (occurrence: US)
  Receive Date: 20140605
  Receipt Date: 20140605
  Transmission Date: 20141212
  Serious: No
  Sender: FDA-Public Use
  Company Number: US-BAYER-2014-083663

PATIENT
  Age: 82 Year
  Sex: Female
  Weight: 60.32 kg

DRUGS (9)
  1. ALEVE CAPLET [Suspect]
     Indication: INFLAMMATORY PAIN
     Route: 048
  2. ALEVE CAPLET [Suspect]
     Indication: ANTIINFLAMMATORY THERAPY
     Route: 048
  3. ALEVE CAPLET [Suspect]
     Indication: INFLAMMATORY PAIN
     Dosage: 2 DF, UNK
     Route: 048
     Dates: start: 20140602
  4. ALEVE CAPLET [Suspect]
     Indication: INFLAMMATORY PAIN
     Dosage: 2 DF, UNK
     Route: 048
     Dates: start: 20140603
  5. ELMIRON [Concomitant]
  6. BENICAR [Concomitant]
  7. AMLODIPINE [Concomitant]
  8. TEMAZEPAM [Concomitant]
  9. CLONAZEPAM [Concomitant]

REACTIONS (2)
  - Intentional product misuse [Unknown]
  - Expired product administered [None]
